FAERS Safety Report 15469314 (Version 1)
Quarter: 2020Q3

REPORT INFORMATION
  Report Type: Spontaneous
  Country: KZ (occurrence: KZ)
  Receive Date: 20181005
  Receipt Date: 20181005
  Transmission Date: 20201104
  Serious: Yes (Death, Other)
  Sender: FDA-Public Use
  Company Number: KZ-JNJFOC-20180935714

PATIENT
  Age: 39 Year
  Sex: Male
  Weight: 71.5 kg

DRUGS (11)
  1. BEDAQUILINE [Suspect]
     Active Substance: BEDAQUILINE
     Indication: MENINGITIS TUBERCULOUS
     Route: 048
     Dates: end: 20180917
  2. MANNITOL. [Concomitant]
     Active Substance: MANNITOL
     Route: 042
  3. AMIKACIN. [Suspect]
     Active Substance: AMIKACIN
     Indication: MENINGITIS TUBERCULOUS
     Route: 065
     Dates: start: 20180825, end: 20180917
  4. CARBAMAZEPINUM [Concomitant]
     Active Substance: CARBAMAZEPINE
     Route: 065
  5. CLOFAZIMINE [Suspect]
     Active Substance: CLOFAZIMINE
     Indication: MENINGITIS TUBERCULOUS
     Route: 065
     Dates: start: 20180825, end: 20180917
  6. MOXIFLOXACIN. [Suspect]
     Active Substance: MOXIFLOXACIN
     Indication: MENINGITIS TUBERCULOUS
     Route: 065
     Dates: start: 20180825, end: 20180917
  7. LINEZOLID. [Suspect]
     Active Substance: LINEZOLID
     Indication: MENINGITIS TUBERCULOUS
     Route: 065
     Dates: start: 20180825, end: 20180917
  8. DIAZEPAMUM [Concomitant]
     Active Substance: DIAZEPAM
     Route: 030
  9. BEDAQUILINE [Suspect]
     Active Substance: BEDAQUILINE
     Indication: MENINGITIS TUBERCULOUS
     Route: 048
     Dates: start: 20180825, end: 2018
  10. DEXAMETHASONE. [Concomitant]
     Active Substance: DEXAMETHASONE
     Route: 042
  11. TOLPERISONE [Concomitant]
     Active Substance: TOLPERISONE
     Route: 030

REACTIONS (2)
  - Meningitis tuberculous [Unknown]
  - Cardiopulmonary failure [Fatal]

NARRATIVE: CASE EVENT DATE: 201808
